FAERS Safety Report 25800401 (Version 2)
Quarter: 2025Q4

REPORT INFORMATION
  Report Type: Spontaneous
  Country: US (occurrence: US)
  Receive Date: 20250915
  Receipt Date: 20251030
  Transmission Date: 20260119
  Serious: No
  Sender: SANDOZ
  Company Number: US-SANDOZ-SDZ2025US065939

PATIENT
  Sex: Female

DRUGS (3)
  1. MEKINIST [Suspect]
     Active Substance: TRAMETINIB DIMETHYL SULFOXIDE
     Indication: Product used for unknown indication
     Dosage: 12 ML, QD
     Route: 048
     Dates: start: 202507
  2. TAFINLAR [Suspect]
     Active Substance: DABRAFENIB MESYLATE
     Indication: Product used for unknown indication
     Dosage: 50 MG, BID
     Route: 048
     Dates: start: 202507
  3. VANCOMYCIN [Suspect]
     Active Substance: VANCOMYCIN
     Indication: Brain neoplasm malignant
     Dosage: UNK
     Route: 065

REACTIONS (1)
  - Drug hypersensitivity [Unknown]
